FAERS Safety Report 8908654 (Version 3)
Quarter: 2013Q2

REPORT INFORMATION
  Report Type: Report from Study
  Country: US (occurrence: US)
  Receive Date: 20121114
  Receipt Date: 20130418
  Transmission Date: 20140414
  Serious: Yes (Death, Other)
  Sender: FDA-Public Use
  Company Number: US-ROCHE-1154720

PATIENT
  Age: 56 Year
  Sex: Female

DRUGS (3)
  1. XELODA [Suspect]
     Indication: GASTRIC CANCER
     Route: 065
     Dates: start: 201208, end: 201208
  2. XELODA [Suspect]
     Route: 048
     Dates: start: 201207, end: 201207
  3. XELODA [Suspect]
     Route: 048
     Dates: start: 20120301, end: 20120801

REACTIONS (6)
  - Death [Fatal]
  - Malignant neoplasm progression [Unknown]
  - Apparent death [Unknown]
  - Eating disorder [Unknown]
  - Dysphagia [Unknown]
  - Vomiting [Unknown]
